FAERS Safety Report 9465283 (Version 1)
Quarter: 2013Q3

REPORT INFORMATION
  Report Type: Spontaneous
  Country: SE (occurrence: SE)
  Receive Date: 20130819
  Receipt Date: 20130819
  Transmission Date: 20140515
  Serious: Yes (Hospitalization)
  Sender: FDA-Public Use
  Company Number: PHHY2013SE088230

PATIENT
  Age: 73 Year
  Sex: Female

DRUGS (4)
  1. ENALAPRIL [Suspect]
     Dosage: 10 MG, QD
     Dates: start: 2012, end: 20130317
  2. METOPROLOL SANDOZ//METOPROLOL SUCCINATE [Concomitant]
     Dosage: 50 MG, UNK
  3. OMEPRAZOL ACTAVIS [Concomitant]
     Dosage: 20 MG, UNK
  4. FURIX [Concomitant]
     Dosage: 20 MG, UNK

REACTIONS (7)
  - Chills [Recovered/Resolved]
  - Abdominal pain [Recovered/Resolved]
  - Vomiting [Recovered/Resolved]
  - Pyrexia [Recovered/Resolved]
  - Cough [Recovered/Resolved]
  - Red blood cell sedimentation rate increased [Recovered/Resolved]
  - Pancreatitis [Recovered/Resolved]
